FAERS Safety Report 5103428-X (Version None)
Quarter: 2006Q3

REPORT INFORMATION
  Report Type: 
  Country: None (occurrence: None)
  Receive Date: 20060731
  Receipt Date: 20060424
  Transmission Date: 20061208
  Serious: Yes (Hospitalization, Other)
  Sender: FDA-Public Use
  Company Number: US-JNJFOC-20060304732

PATIENT
  Age: 19 Year
  Sex: Female
  Weight: 33.3394 kg

DRUGS (6)
  1. RISPERDAL [Suspect]
     Indication: AGGRESSION
     Dosage: , IN 1 DAY
     Dates: start: 20021001
  2. RISPERDAL [Suspect]
     Indication: AGGRESSION
     Dosage: 1 MG, ORAL
     Route: 048
     Dates: start: 20041105
  3. DEPO-PROVERA SUSPENSION/INJ [Concomitant]
  4. LAMICTAL (CHEWABLE TABLET) LAMOTRIGINE [Concomitant]
  5. PROZAC [Concomitant]
  6. BACLOFEN [Concomitant]

REACTIONS (9)
  - BRONCHITIS ACUTE [None]
  - CONJUNCTIVITIS [None]
  - CONVULSION [None]
  - DIABETES MELLITUS [None]
  - GENITAL RASH [None]
  - MUSCLE SPASMS [None]
  - PAIN IN EXTREMITY [None]
  - SOMNOLENCE [None]
  - WEIGHT INCREASED [None]
